FAERS Safety Report 7520899-X (Version None)
Quarter: 2011Q2

REPORT INFORMATION
  Report Type: 
  Country: None (occurrence: None)
  Receive Date: 20110603
  Receipt Date: 20101123
  Transmission Date: 20111010
  Serious: Yes (Other)
  Sender: FDA-Public Use
  Company Number: US-BAYER-201047797GPV

PATIENT

DRUGS (2)
  1. LENALIDOMIDE [Suspect]
     Indication: METASTATIC MALIGNANT MELANOMA
     Dosage: 25 MG (DAILY DOSE), , ORAL
     Route: 048
  2. DACARBAZINE [Suspect]
     Indication: METASTATIC MALIGNANT MELANOMA
     Route: 042

REACTIONS (1)
  - DEEP VEIN THROMBOSIS [None]
